FAERS Safety Report 20073847 (Version 1)
Quarter: 2021Q4

REPORT INFORMATION
  Report Type: Report from Study
  Country: CN (occurrence: CN)
  Receive Date: 20211116
  Receipt Date: 20211116
  Transmission Date: 20220304
  Serious: Yes (Other)
  Sender: FDA-Public Use
  Company Number: CN-ASTELLAS-2021US043457

PATIENT
  Age: 5 Year
  Sex: Male

DRUGS (4)
  1. TACROLIMUS [Suspect]
     Active Substance: TACROLIMUS
     Indication: Nephrotic syndrome
     Route: 065
  2. TACROLIMUS [Suspect]
     Active Substance: TACROLIMUS
     Indication: Prophylaxis against transplant rejection
     Dosage: UNK, UNKNOWN FREQ.
     Route: 065
  3. CYCLOSPORINE [Concomitant]
     Active Substance: CYCLOSPORINE
     Indication: Nephrotic syndrome
     Route: 065
     Dates: start: 2016
  4. CYCLOPHOSPHAMIDE [Concomitant]
     Active Substance: CYCLOPHOSPHAMIDE
     Indication: Nephrotic syndrome
     Route: 065
     Dates: start: 2016

REACTIONS (5)
  - Pleurisy [Unknown]
  - Cellulitis [Unknown]
  - Peritonitis [Unknown]
  - Off label use [Unknown]
  - Product use in unapproved indication [Unknown]
